FAERS Safety Report 10255398 (Version 1)
Quarter: 2013Q4

REPORT INFORMATION
  Report Type: Spontaneous
  Country: US (occurrence: None)
  Receive Date: 20130909
  Receipt Date: 20130909
  Transmission Date: 20140711
  Serious: Yes (Death)
  Sender: FDA-Public Use
  Company Number: None

PATIENT
  Age: 31 Year
  Sex: Male

DRUGS (7)
  1. ZYPREXA RELPREVV [Suspect]
     Indication: SCHIZOAFFECTIVE DISORDER
     Route: 030
     Dates: start: 20130522
  2. LITHIUM 600 MG BID FOR SCHIZOAFFECTIVE DISORDER [Concomitant]
  3. PROLIXIN 10 MG QHS [Concomitant]
  4. PROZAC 20 MG QAM [Concomitant]
  5. SEROQUEL 200 MG QHS [Concomitant]
  6. TEGRETOL 200 MG BID [Concomitant]
  7. VISTARIL 50 M G QHS [Concomitant]

REACTIONS (4)
  - Schizophrenia [None]
  - Treatment noncompliance [None]
  - Alcohol abuse [None]
  - Alcohol poisoning [None]
